FAERS Safety Report 9778891 (Version 1)
Quarter: 2013Q4

REPORT INFORMATION
  Report Type: Spontaneous
  Country: FR (occurrence: FR)
  Receive Date: 20131223
  Receipt Date: 20131223
  Transmission Date: 20140711
  Serious: Yes (Other)
  Sender: FDA-Public Use
  Company Number: FR-JNJFOC-20131211912

PATIENT
  Age: 66 Year
  Sex: Female

DRUGS (1)
  1. EPITOMAX [Suspect]
     Indication: CLUSTER HEADACHE
     Route: 048
     Dates: start: 201207, end: 201311

REACTIONS (1)
  - Dementia [Not Recovered/Not Resolved]
